FAERS Safety Report 9693064 (Version 1)
Quarter: 2013Q4

REPORT INFORMATION
  Report Type: Spontaneous
  Country: AU (occurrence: None)
  Receive Date: 20131114
  Receipt Date: 20131114
  Transmission Date: 20140711
  Serious: Yes (Life-Threatening, Other)
  Sender: FDA-Public Use
  Company Number: 2013AP009548

PATIENT
  Age: 82 Year
  Sex: Male

DRUGS (2)
  1. CLOPIDOGREL [Suspect]
     Dosage: 300 MG; UNKNOWN
  2. ASPIRIN [Suspect]

REACTIONS (4)
  - Pharyngeal disorder [None]
  - Intra-abdominal haemorrhage [None]
  - Platelet dysfunction [None]
  - Procedural complication [None]
